FAERS Safety Report 20024364 (Version 1)
Quarter: 2021Q4

REPORT INFORMATION
  Report Type: Spontaneous
  Country: RU (occurrence: RU)
  Receive Date: 20211102
  Receipt Date: 20211102
  Transmission Date: 20220303
  Serious: Yes (Other)
  Sender: FDA-Public Use
  Company Number: RU-Merck Healthcare KGaA-9274792

PATIENT
  Age: 66 Year
  Sex: Female

DRUGS (17)
  1. ERBITUX [Suspect]
     Active Substance: CETUXIMAB
     Indication: Lip and/or oral cavity cancer
     Dosage: UNK UNK, UNKNOWN
     Route: 065
     Dates: start: 20200807, end: 20201009
  2. ERBITUX [Suspect]
     Active Substance: CETUXIMAB
     Dosage: UNK UNK, UNKNOWN
     Route: 065
     Dates: start: 20201118, end: 20201223
  3. ERBITUX [Suspect]
     Active Substance: CETUXIMAB
     Dosage: UNK UNK, UNKNOWN
     Route: 065
     Dates: start: 20210115, end: 20210222
  4. ERBITUX [Suspect]
     Active Substance: CETUXIMAB
     Dosage: UNK UNK, UNKNOWN
     Route: 065
     Dates: start: 20210302, end: 20210323
  5. ERBITUX [Suspect]
     Active Substance: CETUXIMAB
     Dosage: 250 MG/M2, WEEKLY (1/W)
     Route: 065
     Dates: start: 20210414
  6. CISPLATIN [Concomitant]
     Active Substance: CISPLATIN
     Indication: Lip and/or oral cavity cancer
     Dosage: UNK
     Dates: start: 20191219, end: 20200121
  7. CISPLATIN [Concomitant]
     Active Substance: CISPLATIN
     Dosage: 40 MG/M2, UNKNOWN
     Dates: start: 20200312, end: 20200508
  8. CISPLATIN [Concomitant]
     Active Substance: CISPLATIN
     Dosage: UNK UNK, UNKNOWN
     Dates: start: 20200807, end: 20201009
  9. CISPLATIN [Concomitant]
     Active Substance: CISPLATIN
     Dosage: UNK UNK, UNKNOWN
     Dates: start: 20201118, end: 20201223
  10. CISPLATIN [Concomitant]
     Active Substance: CISPLATIN
     Dosage: UNK UNK, UNKNOWN
     Dates: start: 20210115, end: 20210222
  11. FLUOROURACIL [Concomitant]
     Active Substance: FLUOROURACIL
     Indication: Lip and/or oral cavity cancer
     Dosage: UNK UNK, UNKNOWN
     Dates: start: 20191219, end: 20200121
  12. FLUOROURACIL [Concomitant]
     Active Substance: FLUOROURACIL
     Dosage: UNK UNK, UNKNOWN
     Dates: start: 20200807, end: 20201009
  13. FLUOROURACIL [Concomitant]
     Active Substance: FLUOROURACIL
     Dosage: UNK UNK, UNKNOWN
     Dates: start: 20201118, end: 20201223
  14. FLUOROURACIL [Concomitant]
     Active Substance: FLUOROURACIL
     Dosage: UNK UNK, UNKNOWN
     Dates: start: 20210115, end: 20210222
  15. FLUOROURACIL [Concomitant]
     Active Substance: FLUOROURACIL
     Dosage: UNK UNK, UNKNOWN
     Dates: start: 20210302, end: 20210323
  16. CARBOPLATIN [Concomitant]
     Active Substance: CARBOPLATIN
     Indication: Lip and/or oral cavity cancer
     Dosage: UNK UNK, UNKNOWN
     Dates: start: 20191219, end: 20200121
  17. CARBOPLATIN [Concomitant]
     Active Substance: CARBOPLATIN
     Dosage: UNK UNK, UNKNOWN
     Dates: start: 20210302, end: 20210323

REACTIONS (6)
  - Sternal fracture [Recovering/Resolving]
  - Pathological fracture [Recovering/Resolving]
  - COVID-19 pneumonia [Unknown]
  - Pneumonitis [Recovering/Resolving]
  - Malignant neoplasm progression [Unknown]
  - Asthenia [Unknown]

NARRATIVE: CASE EVENT DATE: 20200101
